FAERS Safety Report 23869362 (Version 4)
Quarter: 2024Q3

REPORT INFORMATION
  Report Type: Report from Study
  Country: US (occurrence: US)
  Receive Date: 20240517
  Receipt Date: 20240926
  Transmission Date: 20241017
  Serious: Yes (Hospitalization, Other)
  Sender: AMGEN
  Company Number: US-HORIZON THERAPEUTICS-HZN-2024-005480

PATIENT
  Age: 46 Year
  Sex: Male

DRUGS (5)
  1. KRYSTEXXA [Suspect]
     Active Substance: PEGLOTICASE
     Indication: Gout
     Dosage: 8 MILLIGRAM
     Route: 042
     Dates: start: 20240425
  2. KRYSTEXXA [Suspect]
     Active Substance: PEGLOTICASE
     Dosage: 8 MILLIGRAM
     Route: 042
     Dates: start: 20240509
  3. KRYSTEXXA [Suspect]
     Active Substance: PEGLOTICASE
     Dosage: 8 MILLIGRAM
     Route: 042
     Dates: start: 20240523
  4. KRYSTEXXA [Suspect]
     Active Substance: PEGLOTICASE
     Dosage: 8 MILLIGRAM
     Route: 042
     Dates: start: 20240613
  5. KRYSTEXXA [Suspect]
     Active Substance: PEGLOTICASE
     Dosage: 8 MILLIGRAM
     Route: 042
     Dates: start: 20240627

REACTIONS (2)
  - Loss of consciousness [Not Recovered/Not Resolved]
  - Implantable defibrillator insertion [Unknown]

NARRATIVE: CASE EVENT DATE: 20240509
